FAERS Safety Report 10422745 (Version 2)
Quarter: 2015Q2

REPORT INFORMATION
  Report Type: Spontaneous
  Country: DE (occurrence: DE)
  Receive Date: 20140902
  Receipt Date: 20150626
  Transmission Date: 20150821
  Serious: Yes (Hospitalization)
  Sender: FDA-Public Use
  Company Number: DE-UCBSA-2014010313

PATIENT
  Age: 48 Year
  Sex: Male
  Weight: 100 kg

DRUGS (5)
  1. TRIMIPRAMIN [Concomitant]
     Dosage: 100 MG, ONCE DAILY (QD), EVERY DAYS
     Route: 048
  2. NEUPRO [Suspect]
     Active Substance: ROTIGOTINE
     Indication: RESTLESS LEGS SYNDROME
     Dosage: 1 MG, ONCE DAILY (QD), 1 MG EVERY 24 HOURS
     Route: 062
     Dates: start: 20140811, end: 20140812
  3. ORLISTAT [Concomitant]
     Active Substance: ORLISTAT
     Indication: OBESITY
     Dosage: 2 DF, 3X/DAY (TID), 6 DOSAGE FORMS EVERY DAYS
     Route: 048
  4. PROMETHAZINE [Concomitant]
     Active Substance: PROMETHAZINE\PROMETHAZINE HYDROCHLORIDE
     Dosage: 50-100 ML
     Route: 048
     Dates: start: 20140811
  5. SERTRALINE [Concomitant]
     Active Substance: SERTRALINE HYDROCHLORIDE
     Dosage: 100 MG, ONCE DAILY (QD)
     Route: 048

REACTIONS (1)
  - Restlessness [Unknown]

NARRATIVE: CASE EVENT DATE: 20140811
